FAERS Safety Report 6413910-0 (Version None)
Quarter: 2009Q4

REPORT INFORMATION
  Report Type: 
  Country: None (occurrence: None)
  Receive Date: 20091026
  Receipt Date: 20091019
  Transmission Date: 20100525
  Serious: Yes (Other)
  Sender: FDA-Public Use
  Company Number: B0599555A

PATIENT
  Sex: Male
  Weight: 80 kg

DRUGS (3)
  1. SERETIDE [Suspect]
     Route: 055
     Dates: start: 20080809
  2. DICLOFENAC [Suspect]
     Indication: BACK PAIN
     Dosage: 50MG THREE TIMES PER DAY
     Route: 048
     Dates: start: 20090925, end: 20091002
  3. SPIRIVA [Suspect]
     Dosage: 18MCG PER DAY
     Route: 055
     Dates: start: 20080809

REACTIONS (3)
  - PALPITATIONS [None]
  - TACHYCARDIA [None]
  - VENTRICULAR TACHYCARDIA [None]
